FAERS Safety Report 5363767-4 (Version None)
Quarter: 2007Q2

REPORT INFORMATION
  Report Type: 
  Country: None (occurrence: None)
  Receive Date: 20070620
  Receipt Date: 20070613
  Transmission Date: 20071010
  Serious: Yes (Hospitalization)
  Sender: FDA-Public Use
  Company Number: US-JNJFOC-20070603855

PATIENT
  Age: 71 Year
  Sex: Male

DRUGS (2)
  1. FENTANYL TRANSDERMAL SYSTEM [Suspect]
     Indication: PAIN MANAGEMENT
     Route: 062
  2. PERCOCET [Concomitant]
     Dosage: 6-8 TABLETS PER DAY
     Route: 065

REACTIONS (1)
  - UNEVALUABLE EVENT [None]
